FAERS Safety Report 21355353 (Version 2)
Quarter: 2022Q3

REPORT INFORMATION
  Report Type: Spontaneous
  Country: FR (occurrence: FR)
  Receive Date: 20220920
  Receipt Date: 20220921
  Transmission Date: 20221027
  Serious: Yes (Congenital Anomaly)
  Sender: FDA-Public Use
  Company Number: None

PATIENT
  Sex: Female

DRUGS (5)
  1. NEURONTIN [Suspect]
     Active Substance: GABAPENTIN
     Indication: Multiple sclerosis
     Dosage: 600 MG, 1X/DAY
     Route: 064
     Dates: end: 202201
  2. LYRICA [Suspect]
     Active Substance: PREGABALIN
     Indication: Multiple sclerosis
     Dosage: 50 MG, 1X/DAY
     Route: 064
     Dates: start: 20211210
  3. EBASTINE [Suspect]
     Active Substance: EBASTINE
     Indication: Hypersensitivity
     Dosage: UNK
     Route: 064
     Dates: start: 20211108
  4. TYSABRI [Suspect]
     Active Substance: NATALIZUMAB
     Indication: Multiple sclerosis
     Dosage: 1 DF, 1X/DAY
     Route: 064
     Dates: start: 20211108, end: 20220415
  5. AERIUS (DESLORATADINE) [Suspect]
     Active Substance: DESLORATADINE
     Indication: Hypersensitivity
     Dosage: 5 MG, 1X/DAY
     Route: 064
     Dates: start: 20211210

REACTIONS (2)
  - Maternal exposure during pregnancy [Recovering/Resolving]
  - Cleft palate [Recovering/Resolving]

NARRATIVE: CASE EVENT DATE: 20220804
